FAERS Safety Report 23138610 (Version 1)
Quarter: 2023Q4

REPORT INFORMATION
  Report Type: Report from Study
  Country: US (occurrence: US)
  Receive Date: 20231102
  Receipt Date: 20231102
  Transmission Date: 20240109
  Serious: Yes (Other)
  Sender: FDA-Public Use
  Company Number: US-JNJFOC-20231063628

PATIENT

DRUGS (1)
  1. REMICADE [Suspect]
     Active Substance: INFLIXIMAB
     Indication: Product used for unknown indication
     Route: 041

REACTIONS (8)
  - Sepsis [Unknown]
  - Precancerous cells present [Unknown]
  - COVID-19 [Unknown]
  - Muscle spasms [Unknown]
  - Arthropathy [Unknown]
  - Erythema [Unknown]
  - Vasodilatation [Unknown]
  - Fistula [Unknown]
